FAERS Safety Report 15017118 (Version 2)
Quarter: 2021Q3

REPORT INFORMATION
  Report Type: Spontaneous
  Country: US (occurrence: US)
  Receive Date: 20180615
  Receipt Date: 20210903
  Transmission Date: 20211014
  Serious: Yes (Disabling)
  Sender: FDA-Public Use
  Company Number: US-TEVA-2018-US-907571

PATIENT
  Age: 44 Year
  Sex: Female
  Weight: 98.4 kg

DRUGS (25)
  1. DOCETAXEL SAGENT [Suspect]
     Active Substance: DOCETAXEL
     Indication: BREAST CANCER STAGE IV
     Dosage: NO OF CYCLES: 05, EVERY THREE WEEKS
     Route: 040
     Dates: start: 20150323, end: 20160224
  2. KETOROLAC [Concomitant]
     Active Substance: KETOROLAC TROMETHAMINE
     Dosage: DOSAGE: 60 MG
     Route: 042
  3. LOTREL [Concomitant]
     Active Substance: AMLODIPINE BESYLATE\BENAZEPRIL HYDROCHLORIDE
     Dosage: 5?20 MG TAKE 1 CAPSULE BY MOUTH DAILY
     Route: 048
  4. HERCEPTIN [Suspect]
     Active Substance: TRASTUZUMAB
     Indication: BREAST CANCER STAGE IV
     Route: 042
     Dates: start: 20150323, end: 20160120
  5. DEXAMETHASONE. [Concomitant]
     Active Substance: DEXAMETHASONE
     Route: 042
  6. MORPHINE [Concomitant]
     Active Substance: MORPHINE
     Dosage: 15 MG Q12H
     Route: 048
  7. MS CONTIN [Concomitant]
     Active Substance: MORPHINE SULFATE
     Indication: CANCER PAIN
     Dosage: INCREASED TO 30 MG B.I.D.,
     Route: 065
  8. NORCO [Concomitant]
     Active Substance: ACETAMINOPHEN\HYDROCODONE BITARTRATE
     Indication: CANCER PAIN
     Dosage: 10?325 MG TABLET 2 TAB Q6H PRN
     Route: 048
  9. CYMBALTA [Concomitant]
     Active Substance: DULOXETINE HYDROCHLORIDE
     Dosage: QDAY
     Route: 048
  10. TRAMADOL. [Concomitant]
     Active Substance: TRAMADOL
     Route: 065
  11. PERTUZUMAB. [Suspect]
     Active Substance: PERTUZUMAB
     Indication: BREAST CANCER STAGE IV
     Route: 042
     Dates: start: 20150323, end: 20160120
  12. SODIUM CHLORIDE. [Concomitant]
     Active Substance: SODIUM CHLORIDE
     Dosage: 0.9%, 250 ML
     Route: 042
  13. DIPHENHYDRAMINE. [Concomitant]
     Active Substance: DIPHENHYDRAMINE
     Dosage: DOSAGE: 25 MG
     Route: 042
  14. ZOLOFT [Concomitant]
     Active Substance: SERTRALINE HYDROCHLORIDE
     Dosage: EVERYDAY
     Route: 048
  15. LASIX [Concomitant]
     Active Substance: FUROSEMIDE
     Dosage: TAKE 1 TABLET BY MOUTH 2 TIMES DAILY
     Route: 048
  16. ONDANSETRON [Concomitant]
     Active Substance: ONDANSETRON
     Route: 042
  17. PERCOCET [Concomitant]
     Active Substance: ACETAMINOPHEN\OXYCODONE HYDROCHLORIDE
     Dosage: 10?325 MG
     Route: 065
  18. PROMETHAZINE [Concomitant]
     Active Substance: PROMETHAZINE HYDROCHLORIDE
     Route: 065
  19. ZOMETA [Concomitant]
     Active Substance: ZOLEDRONIC ACID
     Route: 042
     Dates: start: 20151028, end: 20161109
  20. HYDROCODONE [Concomitant]
     Active Substance: HYDROCODONE
     Route: 065
  21. NEURONTIN [Concomitant]
     Active Substance: GABAPENTIN
     Dosage: 3 (THREE) TIMES DAILY
     Route: 048
  22. LEXAPRO [Concomitant]
     Active Substance: ESCITALOPRAM OXALATE
     Route: 065
  23. HYDROCORTISONE. [Concomitant]
     Active Substance: HYDROCORTISONE
     Dosage: DOSAGE:100 MG
     Route: 042
  24. DILANTIN [Concomitant]
     Active Substance: PHENYTOIN
     Dosage: EVERY DAY
     Route: 048
  25. VITAMIN D [Concomitant]
     Active Substance: VITAMIN D NOS
     Route: 065

REACTIONS (5)
  - Pain in extremity [Unknown]
  - Madarosis [Not Recovered/Not Resolved]
  - Alopecia totalis [Not Recovered/Not Resolved]
  - Hair texture abnormal [Not Recovered/Not Resolved]
  - Hair colour changes [Not Recovered/Not Resolved]

NARRATIVE: CASE EVENT DATE: 2015
